FAERS Safety Report 14871466 (Version 1)
Quarter: 2018Q2

REPORT INFORMATION
  Report Type: Spontaneous
  Country: US (occurrence: US)
  Receive Date: 20180509
  Receipt Date: 20180509
  Transmission Date: 20180711
  Serious: Yes (Other)
  Sender: FDA-Public Use
  Company Number: US-SA-2018SA130385

PATIENT
  Age: 58 Year
  Sex: Male

DRUGS (2)
  1. SOLOSTAR [Suspect]
     Active Substance: DEVICE
     Indication: TYPE 2 DIABETES MELLITUS
  2. LANTUS SOLOSTAR [Suspect]
     Active Substance: INSULIN GLARGINE
     Indication: TYPE 2 DIABETES MELLITUS
     Dosage: DOSE:70 UNIT(S)
     Route: 051
     Dates: start: 2016, end: 20180427

REACTIONS (5)
  - Glycosylated haemoglobin increased [Unknown]
  - Drug dose omission [Unknown]
  - Nephrolithiasis [Unknown]
  - Nervous system disorder [Unknown]
  - Chronic obstructive pulmonary disease [Unknown]
